FAERS Safety Report 6624835-X (Version None)
Quarter: 2010Q1

REPORT INFORMATION
  Report Type: 
  Country: None (occurrence: None)
  Receive Date: 20100223
  Receipt Date: 20091104
  Transmission Date: 20100710
  Serious: No
  Sender: FDA-Public Use
  Company Number: 8054208

PATIENT
  Sex: Female
  Weight: 77.1 kg

DRUGS (5)
  1. CERTOLIZUMAB PEGOL [Suspect]
     Indication: COLITIS ULCERATIVE
     Dosage: 400 MG SUBCUTANEOUS
     Route: 058
     Dates: start: 20091102
  2. CERTOLIZUMAB PEGOL [Suspect]
     Indication: CROHN'S DISEASE
     Dosage: 400 MG SUBCUTANEOUS
     Route: 058
     Dates: start: 20091102
  3. ASACOL [Concomitant]
  4. PREDNISONE TAB [Concomitant]
  5. IMURAN [Concomitant]

REACTIONS (3)
  - INJECTION SITE REACTION [None]
  - RASH ERYTHEMATOUS [None]
  - RASH PRURITIC [None]
